FAERS Safety Report 4688639-X (Version None)
Quarter: 2005Q2

REPORT INFORMATION
  Report Type: 
  Country: None (occurrence: None)
  Receive Date: 20050613
  Receipt Date: 20050505
  Transmission Date: 20051028
  Serious: Yes (Death, Hospitalization, Other)
  Sender: FDA-Public Use
  Company Number: DE-BRISTOL-MYERS SQUIBB COMPANY-12958047

PATIENT
  Age: 68 Year
  Sex: Male

DRUGS (8)
  1. CISPLATIN [Suspect]
     Indication: SMALL CELL LUNG CANCER STAGE UNSPECIFIED
     Route: 042
     Dates: start: 20050221, end: 20050221
  2. CISPLATIN [Suspect]
     Route: 042
     Dates: start: 20050404, end: 20050404
  3. ETOPOSIDE [Suspect]
     Indication: SMALL CELL LUNG CANCER STAGE UNSPECIFIED
     Route: 042
     Dates: start: 20050221, end: 20050223
  4. ETOPOSIDE [Suspect]
     Route: 042
     Dates: start: 20050404, end: 20050406
  5. ETOPOSIDE [Suspect]
     Route: 042
     Dates: start: 20050404, end: 20050406
  6. MODOPAR [Concomitant]
  7. RAMIPRIL [Concomitant]
  8. PIROXICAM [Concomitant]

REACTIONS (6)
  - CONSTIPATION [None]
  - LEUKOPENIA [None]
  - MALIGNANT NEOPLASM PROGRESSION [None]
  - NEUTROPENIA [None]
  - PNEUMONIA [None]
  - SMALL CELL LUNG CANCER STAGE UNSPECIFIED [None]
